FAERS Safety Report 17161961 (Version 2)
Quarter: 2020Q1

REPORT INFORMATION
  Report Type: Spontaneous
  Country: US (occurrence: US)
  Receive Date: 20191217
  Receipt Date: 20200228
  Transmission Date: 20200409
  Serious: No
  Sender: FDA-Public Use
  Company Number: US-BIOGEN-2019BI00730722

PATIENT
  Age: 33 Year
  Sex: Female

DRUGS (2)
  1. TECFIDERA [Suspect]
     Active Substance: DIMETHYL FUMARATE
     Indication: MULTIPLE SCLEROSIS
     Route: 048
     Dates: start: 201512
  2. TECFIDERA [Suspect]
     Active Substance: DIMETHYL FUMARATE
     Route: 048
     Dates: start: 2015

REACTIONS (7)
  - Nausea [Unknown]
  - Vomiting [Unknown]
  - Product dose omission [Unknown]
  - Rash papular [Unknown]
  - Multiple sclerosis [Unknown]
  - Flushing [Unknown]
  - Decreased appetite [Unknown]

NARRATIVE: CASE EVENT DATE: 20200225
